FAERS Safety Report 7674463-2 (Version None)
Quarter: 2011Q3

REPORT INFORMATION
  Report Type: 
  Country: None (occurrence: None)
  Receive Date: 20110810
  Receipt Date: 20110805
  Transmission Date: 20111222
  Serious: Yes (Life-Threatening, Hospitalization, Other)
  Sender: FDA-Public Use
  Company Number: JP-ROCHE-715637

PATIENT
  Sex: Female
  Weight: 39 kg

DRUGS (39)
  1. TOCILIZUMAB [Suspect]
     Route: 041
     Dates: start: 20081126, end: 20081126
  2. PROGRAF [Concomitant]
     Route: 048
     Dates: end: 20080810
  3. EVISTA [Concomitant]
     Route: 048
  4. TOCILIZUMAB [Suspect]
     Route: 041
     Dates: start: 20081001, end: 20081001
  5. TOCILIZUMAB [Suspect]
     Route: 041
     Dates: start: 20090513, end: 20090513
  6. PREDNISOLONE [Suspect]
     Route: 048
  7. METALCAPTASE [Concomitant]
     Route: 048
  8. RIFADIN [Concomitant]
     Route: 048
     Dates: start: 20080630
  9. PYDOXAL [Concomitant]
     Route: 048
  10. LANSOPRAZOLE [Concomitant]
     Dosage: FORM: PERORAL AGENT.
     Route: 048
     Dates: end: 20100730
  11. PLETAL [Concomitant]
     Route: 048
  12. FLURBIPROFEN [Concomitant]
     Dosage: FORM: TAPE, DOSAGE UNCERTAIN, DRUG:ADOFEED
     Route: 062
  13. FLURBIPROFEN [Concomitant]
     Dosage: FORM: TAPE, NOTE: DOSAGE IS UNCERTAIN.
     Route: 062
  14. TOCILIZUMAB [Suspect]
     Indication: RHEUMATOID ARTHRITIS
     Route: 041
     Dates: start: 20080807, end: 20080807
  15. LORCAM [Suspect]
     Route: 048
     Dates: end: 20100621
  16. PARAPLATIN [Suspect]
     Route: 041
     Dates: start: 20100625, end: 20100721
  17. PURSENNID [Concomitant]
     Route: 048
  18. FERROUS CITRATE [Concomitant]
     Route: 048
  19. LEVOFLOXACIN [Concomitant]
     Route: 048
  20. TOCILIZUMAB [Suspect]
     Route: 041
     Dates: start: 20090319, end: 20090319
  21. TOCILIZUMAB [Suspect]
     Route: 041
     Dates: start: 20090415, end: 20090415
  22. TOCILIZUMAB [Suspect]
     Route: 041
     Dates: start: 20090708, end: 20090708
  23. VOLTAREN [Suspect]
     Dosage: FORM:SUPPOSITORY RECTALE
     Route: 054
     Dates: end: 20100622
  24. TOCILIZUMAB [Suspect]
     Route: 041
     Dates: start: 20081224, end: 20081224
  25. TOCILIZUMAB [Suspect]
     Route: 041
     Dates: start: 20090610, end: 20090610
  26. TOCILIZUMAB [Suspect]
     Route: 041
     Dates: start: 20090805
  27. ALIMTA [Suspect]
     Route: 041
     Dates: start: 20100625, end: 20100721
  28. CARBOPLATIN [Concomitant]
     Route: 041
     Dates: start: 20100625, end: 20100721
  29. CLARITHROMYCIN [Concomitant]
     Route: 048
  30. BEVACIZUMAB [Suspect]
     Route: 041
     Dates: start: 20100625, end: 20100721
  31. TOCILIZUMAB [Suspect]
     Route: 041
     Dates: start: 20081029, end: 20081029
  32. PREDNISOLONE [Suspect]
     Dosage: PREDOHAN
     Route: 048
     Dates: end: 20100625
  33. CYTOTEC [Concomitant]
     Route: 048
  34. TOCILIZUMAB [Suspect]
     Route: 041
     Dates: start: 20090218, end: 20090218
  35. TOCILIZUMAB [Suspect]
     Route: 041
     Dates: start: 20080904, end: 20080904
  36. TOCILIZUMAB [Suspect]
     Route: 041
     Dates: start: 20090121, end: 20090121
  37. PREDNISOLONE [Suspect]
     Route: 048
  38. ISONIAZID [Concomitant]
     Route: 048
     Dates: start: 20080630
  39. ALENDRONATE SODIUM [Concomitant]
     Route: 048

REACTIONS (17)
  - INFECTIOUS PERITONITIS [None]
  - GASTRITIS [None]
  - C-REACTIVE PROTEIN INCREASED [None]
  - GASTROINTESTINAL AMYLOIDOSIS [None]
  - ILEAL PERFORATION [None]
  - LUMBAR SPINAL STENOSIS [None]
  - CARDIAC FAILURE [None]
  - PLEURAL EFFUSION [None]
  - PYREXIA [None]
  - STAPHYLOCOCCAL INFECTION [None]
  - SMALL INTESTINE ULCER [None]
  - ATRIAL FIBRILLATION [None]
  - LUNG ADENOCARCINOMA [None]
  - JOINT SURGERY [None]
  - DIARRHOEA [None]
  - BLOOD UREA INCREASED [None]
  - TACHYCARDIA [None]
